FAERS Safety Report 8199615-7 (Version None)
Quarter: 2012Q1

REPORT INFORMATION
  Report Type: 
  Country: None (occurrence: None)
  Receive Date: 20120310
  Receipt Date: 20120301
  Transmission Date: 20120608
  Serious: Yes (Other)
  Sender: FDA-Public Use
  Company Number: US-VERTEX PHARMACEUTICALS INC.-AE-2012-002908

PATIENT
  Sex: Male

DRUGS (3)
  1. INCIVEK [Suspect]
     Indication: HEPATITIS C
     Dates: start: 20110901, end: 20111110
  2. PEG-INTRON [Concomitant]
     Indication: HEPATITIS C
     Dates: start: 20110901
  3. RIBAVIRIN [Concomitant]
     Indication: HEPATITIS C
     Dates: start: 20110901

REACTIONS (4)
  - PRURITUS [None]
  - RASH [None]
  - THYROID DISORDER [None]
  - FLUID RETENTION [None]
